FAERS Safety Report 9310460 (Version 1)
Quarter: 2013Q2

REPORT INFORMATION
  Report Type: Spontaneous
  Country: US (occurrence: US)
  Receive Date: 20130527
  Receipt Date: 20130527
  Transmission Date: 20140414
  Serious: No
  Sender: FDA-Public Use
  Company Number: US-PFIZER INC-2013160019

PATIENT
  Age: 60 Year
  Sex: Male

DRUGS (2)
  1. CHANTIX [Suspect]
     Indication: SMOKING CESSATION THERAPY
     Dosage: UNK, 2 PILLS A DAY
     Dates: start: 200804
  2. CHANTIX [Suspect]
     Dosage: UNK, 1 PILL A DAY

REACTIONS (1)
  - Abnormal dreams [Recovered/Resolved]
